FAERS Safety Report 5257357-1 (Version None)
Quarter: 2007Q1

REPORT INFORMATION
  Report Type: 
  Country: None (occurrence: None)
  Receive Date: 20061214
  Receipt Date: 20050322
  Transmission Date: 20070707
  Serious: Yes (Hospitalization)
  Sender: FDA-Public Use
  Company Number: 2005UW04446

PATIENT
  Sex: Male

DRUGS (3)
  1. ACCOLATE [Suspect]
  2. METHOTREXATE [Concomitant]
  3. PREDNISONE [Concomitant]

REACTIONS (1)
  - ALLERGIC GRANULOMATOUS ANGIITIS [None]
